FAERS Safety Report 14444272 (Version 1)
Quarter: 2018Q1

REPORT INFORMATION
  Report Type: Spontaneous
  Country: TW (occurrence: TW)
  Receive Date: 20180125
  Receipt Date: 20180125
  Transmission Date: 20180509
  Serious: Yes (Hospitalization, Other)
  Sender: FDA-Public Use
  Company Number: TW-VISTAPHARM, INC.-VER201801-000216

PATIENT
  Age: 76 Year
  Sex: Female

DRUGS (3)
  1. OLANZAPINE. [Concomitant]
     Active Substance: OLANZAPINE
     Indication: MANIA
  2. VALPROIC ACID. [Suspect]
     Active Substance: VALPROIC ACID
     Indication: MANIA
  3. VALPROIC ACID. [Suspect]
     Active Substance: VALPROIC ACID

REACTIONS (3)
  - Hyperkalaemia [Recovered/Resolved]
  - Asthenia [Unknown]
  - Hyponatraemia [Recovered/Resolved]
